FAERS Safety Report 8155452-0 (Version None)
Quarter: 2012Q1

REPORT INFORMATION
  Report Type: 
  Country: None (occurrence: None)
  Receive Date: 20120215
  Receipt Date: 20120123
  Transmission Date: 20120608
  Serious: Yes (Life-Threatening)
  Sender: FDA-Public Use
  Company Number: 2012SP004386

PATIENT
  Age: 43 Year
  Sex: Male
  Weight: 58 kg

DRUGS (1)
  1. BETAMETHASONE SODIUM PHOSPHATE [Suspect]
     Indication: ASTHMA
     Dosage: 2 ML;UNK;IM
     Route: 030

REACTIONS (8)
  - SYNCOPE [None]
  - PALPITATIONS [None]
  - CIRCULATORY COLLAPSE [None]
  - HYPERHIDROSIS [None]
  - BLOOD PRESSURE ABNORMAL [None]
  - SHOCK [None]
  - ANAPHYLACTIC REACTION [None]
  - LISTLESS [None]
